FAERS Safety Report 6348405-6 (Version None)
Quarter: 2009Q3

REPORT INFORMATION
  Report Type: 
  Country: None (occurrence: None)
  Receive Date: 20090911
  Receipt Date: 20090901
  Transmission Date: 20100115
  Serious: Yes (Hospitalization, Other)
  Sender: FDA-Public Use
  Company Number: US-BIOGENIDEC-2009BI021095

PATIENT
  Sex: Female

DRUGS (12)
  1. TYSABRI [Suspect]
     Indication: MULTIPLE SCLEROSIS
     Route: 042
     Dates: start: 20080104, end: 20080718
  2. AMBIEN [Concomitant]
     Indication: SLEEP DISORDER
     Route: 048
  3. AMBIEN CR [Concomitant]
     Indication: SLEEP DISORDER
     Route: 048
  4. OXYCODONE [Concomitant]
     Indication: PAIN
  5. NEXIUM [Concomitant]
     Indication: GASTROOESOPHAGEAL REFLUX DISEASE
  6. NEXIUM [Concomitant]
     Indication: GASTRIC ULCER
  7. VITAMIN D [Concomitant]
     Indication: DRUG USE FOR UNKNOWN INDICATION
  8. CALCIUM [Concomitant]
     Indication: DRUG USE FOR UNKNOWN INDICATION
  9. TYLENOL (CAPLET) [Concomitant]
     Indication: DRUG USE FOR UNKNOWN INDICATION
  10. IBUPROFEN [Concomitant]
     Indication: DRUG USE FOR UNKNOWN INDICATION
  11. MULTI-VITAMIN [Concomitant]
     Indication: SUPPLEMENTATION THERAPY
  12. STOOL SOFTENERS (NOS) [Concomitant]
     Indication: CONSTIPATION

REACTIONS (14)
  - ARTHRALGIA [None]
  - BURNING SENSATION [None]
  - CHEST DISCOMFORT [None]
  - DIPLOPIA [None]
  - DYSPNOEA [None]
  - FEELING HOT [None]
  - GASTRIC ULCER [None]
  - GASTROOESOPHAGEAL REFLUX DISEASE [None]
  - GENERAL SYMPTOM [None]
  - JOINT SPRAIN [None]
  - LABORATORY TEST [None]
  - LOWER LIMB FRACTURE [None]
  - MULTIPLE SCLEROSIS RELAPSE [None]
  - NAUSEA [None]
